FAERS Safety Report 17565844 (Version 1)
Quarter: 2020Q1

REPORT INFORMATION
  Report Type: Spontaneous
  Country: US (occurrence: US)
  Receive Date: 20200308
  Receipt Date: 20200308
  Transmission Date: 20200409
  Serious: Yes (Other)
  Sender: FDA-Public Use
  Company Number: None

PATIENT
  Age: 38 Year
  Sex: Female
  Weight: 101.7 kg

DRUGS (4)
  1. METFORMIN [Concomitant]
     Active Substance: METFORMIN HYDROCHLORIDE
  2. COLACE [Concomitant]
     Active Substance: DOCUSATE SODIUM
  3. BIRTH CONTROL [Concomitant]
     Active Substance: UNSPECIFIED INGREDIENT
  4. LISINOPRIL. [Suspect]
     Active Substance: LISINOPRIL
     Indication: PROTEIN URINE
     Dosage: ?          QUANTITY:1 CAPSULE(S);?
     Route: 048
     Dates: start: 20200115, end: 20200304

REACTIONS (4)
  - Cough [None]
  - Headache [None]
  - Incontinence [None]
  - Pain [None]

NARRATIVE: CASE EVENT DATE: 20200215
